FAERS Safety Report 7077893-5 (Version None)
Quarter: 2010Q4

REPORT INFORMATION
  Report Type: 
  Country: None (occurrence: None)
  Receive Date: 20101101
  Receipt Date: 20101019
  Transmission Date: 20110411
  Serious: Yes (Hospitalization)
  Sender: FDA-Public Use
  Company Number: FR-ELI_LILLY_AND_COMPANY-FR201010004087

PATIENT
  Sex: Female

DRUGS (5)
  1. ZYPREXA [Suspect]
     Indication: PSYCHOTIC DISORDER
     Dosage: 5 MG, DAILY (1/D)
     Route: 048
     Dates: start: 20101026, end: 20101029
  2. OLMETEC [Concomitant]
     Indication: HYPERTENSION
     Dosage: 10 MG, UNK
     Route: 048
     Dates: start: 20091029
  3. PARKINANE LP [Concomitant]
     Dosage: UNK, UNKNOWN
  4. LEXOMIL [Concomitant]
     Route: 048
  5. LEXOMIL [Concomitant]
     Dosage: UNK, UNKNOWN
     Route: 048

REACTIONS (3)
  - COLITIS ISCHAEMIC [None]
  - RENAL FAILURE ACUTE [None]
  - RHABDOMYOLYSIS [None]
